FAERS Safety Report 13322089 (Version 1)
Quarter: 2017Q1

REPORT INFORMATION
  Report Type: Report from Study
  Country: US (occurrence: US)
  Receive Date: 20170310
  Receipt Date: 20170310
  Transmission Date: 20170428
  Serious: Yes (Other)
  Sender: FDA-Public Use
  Company Number: US-SA-2017SA038504

PATIENT
  Age: 48 Year
  Sex: Female

DRUGS (1)
  1. LEMTRADA [Suspect]
     Active Substance: ALEMTUZUMAB
     Indication: MULTIPLE SCLEROSIS
     Route: 041
     Dates: start: 20150331, end: 20150402

REACTIONS (7)
  - Multiple sclerosis relapse [Unknown]
  - Muscular weakness [Unknown]
  - Cerebral atrophy [Unknown]
  - Hemiparesis [Unknown]
  - Nuclear magnetic resonance imaging abnormal [Unknown]
  - Memory impairment [Unknown]
  - Dyspnoea [Unknown]
